FAERS Safety Report 8837859 (Version 1)
Quarter: 2012Q4

REPORT INFORMATION
  Report Type: 
  Country: US (occurrence: US)
  Receive Date: 20121012
  Receipt Date: 20121012
  Transmission Date: 20130627
  Serious: Yes (Other)
  Sender: FDA-Public Use
  Company Number: US-ROCHE-1140516

PATIENT
  Sex: Female
  Weight: 54.7 kg

DRUGS (5)
  1. PROTROPIN [Suspect]
     Indication: HYPOPITUITARISM
     Route: 058
  2. PROTROPIN [Suspect]
     Route: 058
  3. PROTROPIN [Suspect]
     Route: 058
  4. SYNTHROID [Concomitant]
     Route: 065
  5. CORTEF [Concomitant]
     Route: 065

REACTIONS (5)
  - Pneumonia [Unknown]
  - Pharyngitis streptococcal [Unknown]
  - Sinusitis [Unknown]
  - Ear infection [Unknown]
  - Alopecia [Unknown]
